FAERS Safety Report 19232818 (Version 1)
Quarter: 2021Q2

REPORT INFORMATION
  Report Type: Spontaneous
  Country: US (occurrence: US)
  Receive Date: 20210507
  Receipt Date: 20210507
  Transmission Date: 20210717
  Serious: Yes (Hospitalization, Other)
  Sender: FDA-Public Use
  Company Number: US-AUROBINDO-AUR-APL-2021-018005

PATIENT
  Age: 16 Year
  Sex: Male

DRUGS (6)
  1. CLOMIPRAMINE [Concomitant]
     Active Substance: CLOMIPRAMINE
     Indication: PRODUCT USED FOR UNKNOWN INDICATION
     Dosage: UNK
     Route: 065
  2. METHYLPREDNISOLONE. [Suspect]
     Active Substance: METHYLPREDNISOLONE
     Indication: ENCEPHALITIS
     Dosage: UNK (MONTHLY)
     Route: 065
  3. RITUXIMAB. [Concomitant]
     Active Substance: RITUXIMAB
     Indication: PRODUCT USED FOR UNKNOWN INDICATION
     Dosage: UNK (EVERY 6 MONTHS)
     Route: 065
  4. IMMUNE GLOBULIN [Concomitant]
     Indication: PRODUCT USED FOR UNKNOWN INDICATION
     Dosage: UNK (FOR NEARLY 1 YEAR SINCE HIS DIAGNOSIS)
     Route: 042
  5. TOCILIZUMAB. [Concomitant]
     Active Substance: TOCILIZUMAB
     Indication: PRODUCT USED FOR UNKNOWN INDICATION
     Dosage: UNK
     Route: 065
  6. QUETIAPINE. [Concomitant]
     Active Substance: QUETIAPINE
     Indication: PRODUCT USED FOR UNKNOWN INDICATION
     Dosage: UNK
     Route: 065

REACTIONS (23)
  - Headache [Unknown]
  - Product use in unapproved indication [Unknown]
  - Weight increased [Unknown]
  - Aphasia [Unknown]
  - Eye pain [Unknown]
  - Visual impairment [Unknown]
  - Obsessive-compulsive symptom [Recovering/Resolving]
  - Hallucination, auditory [Unknown]
  - Paranoia [Recovered/Resolved]
  - Abnormal behaviour [Recovered/Resolved]
  - Suicidal ideation [Recovered/Resolved]
  - Suicide attempt [Recovered/Resolved]
  - Fatigue [Unknown]
  - Mood altered [Recovering/Resolving]
  - Gait disturbance [Unknown]
  - Acute psychosis [Recovered/Resolved]
  - Insomnia [Unknown]
  - Alexithymia [Recovered/Resolved]
  - Cognitive disorder [Unknown]
  - Decreased appetite [Unknown]
  - Temperature regulation disorder [Unknown]
  - Delusion of replacement [Recovered/Resolved]
  - Irritability [Unknown]
